FAERS Safety Report 22382885 (Version 1)
Quarter: 2023Q2

REPORT INFORMATION
  Report Type: Spontaneous
  Country: US (occurrence: US)
  Receive Date: 20230530
  Receipt Date: 20230530
  Transmission Date: 20230722
  Serious: Yes (Death, Life-Threatening, Hospitalization)
  Sender: FDA-Public Use
  Company Number: US-drreddys-LIT/USA/23/0165639

PATIENT
  Age: 86 Year
  Sex: Female

DRUGS (13)
  1. VINORELBINE [Suspect]
     Active Substance: VINORELBINE TARTRATE
     Indication: Breast cancer metastatic
  2. VINORELBINE [Suspect]
     Active Substance: VINORELBINE TARTRATE
     Indication: Metastasis
  3. NITROGLYCERIN [Suspect]
     Active Substance: NITROGLYCERIN
     Indication: Chest pain
  4. CISPLATIN [Suspect]
     Active Substance: CISPLATIN
     Indication: Breast cancer metastatic
  5. CISPLATIN [Suspect]
     Active Substance: CISPLATIN
     Indication: Metastasis
  6. PACLITAXEL [Suspect]
     Active Substance: PACLITAXEL
     Indication: Breast cancer metastatic
  7. PACLITAXEL [Suspect]
     Active Substance: PACLITAXEL
     Indication: Metastasis
  8. TRASTUZUMAB [Suspect]
     Active Substance: TRASTUZUMAB
     Indication: Breast cancer metastatic
  9. TRASTUZUMAB [Suspect]
     Active Substance: TRASTUZUMAB
     Indication: Metastasis
  10. PERTUZUMAB [Suspect]
     Active Substance: PERTUZUMAB
     Indication: Breast cancer metastatic
  11. PERTUZUMAB [Suspect]
     Active Substance: PERTUZUMAB
     Indication: Metastasis
  12. ROMIPLOSTIM [Suspect]
     Active Substance: ROMIPLOSTIM
     Indication: Breast cancer metastatic
  13. ROMIPLOSTIM [Suspect]
     Active Substance: ROMIPLOSTIM
     Indication: Metastasis

REACTIONS (4)
  - Death [Fatal]
  - Coronary artery disease [Unknown]
  - Stress cardiomyopathy [Unknown]
  - Hypotension [Unknown]
